FAERS Safety Report 11991832 (Version 1)
Quarter: 2016Q1

REPORT INFORMATION
  Report Type: Spontaneous
  Country: US (occurrence: US)
  Receive Date: 20160203
  Receipt Date: 20160203
  Transmission Date: 20160526
  Serious: No
  Sender: FDA-Public Use
  Company Number: US-JNJFOC-20151201772

PATIENT
  Sex: Female
  Weight: 122.47 kg

DRUGS (18)
  1. LINZESS [Concomitant]
     Active Substance: LINACLOTIDE
     Indication: IRRITABLE BOWEL SYNDROME
     Route: 065
  2. FATTY ACIDS NOS [Concomitant]
     Indication: NUTRITIONAL SUPPLEMENTATION
     Route: 065
  3. CETIRIZINE HYDROCHLORIDE. [Suspect]
     Active Substance: CETIRIZINE HYDROCHLORIDE
     Indication: MULTIPLE ALLERGIES
     Dosage: 1-2X DAILY
     Route: 048
  4. LINZESS [Concomitant]
     Active Substance: LINACLOTIDE
     Indication: CONSTIPATION
     Route: 065
  5. ATORVASTATIN [Concomitant]
     Active Substance: ATORVASTATIN
     Indication: BLOOD CHOLESTEROL INCREASED
     Route: 065
  6. ALL OTHER THERAPEUTIC PRODUCTS [Concomitant]
     Active Substance: UNSPECIFIED INGREDIENT
     Indication: ASTHMA
     Dosage: 2 PUFFS
     Route: 065
  7. SINGULAIR [Concomitant]
     Active Substance: MONTELUKAST SODIUM
     Indication: ASTHMA
     Route: 065
  8. MULTIVITAMINS [Concomitant]
     Active Substance: VITAMINS
     Indication: NUTRITIONAL SUPPLEMENTATION
     Route: 065
  9. NOVOLOG [Concomitant]
     Active Substance: INSULIN ASPART
     Indication: TYPE 2 DIABETES MELLITUS
     Dosage: 58 UNITS WITH MEALS
     Route: 065
  10. PREVACID [Concomitant]
     Active Substance: LANSOPRAZOLE
     Indication: PRODUCT USED FOR UNKNOWN INDICATION
     Route: 065
  11. ASPIRIN. [Concomitant]
     Active Substance: ASPIRIN
     Indication: PROPHYLAXIS
     Dosage: 1-2X
     Route: 065
  12. LANTUS [Concomitant]
     Active Substance: INSULIN GLARGINE
     Indication: TYPE 2 DIABETES MELLITUS
     Dosage: 58 UNITS
     Route: 065
  13. CETIRIZINE HYDROCHLORIDE. [Suspect]
     Active Substance: CETIRIZINE HYDROCHLORIDE
     Indication: ASTHMA
     Dosage: 1-2X DAILY
     Route: 048
  14. ALBUTEROL. [Concomitant]
     Active Substance: ALBUTEROL
     Indication: ASTHMA
     Route: 065
  15. COLACE [Concomitant]
     Active Substance: DOCUSATE SODIUM
     Indication: PRODUCT USED FOR UNKNOWN INDICATION
     Route: 065
  16. PROBIOTICS NOS [Concomitant]
     Active Substance: PROBIOTICS NOS
     Indication: NUTRITIONAL SUPPLEMENTATION
     Route: 065
  17. LASIX [Concomitant]
     Active Substance: FUROSEMIDE
     Indication: JOINT SWELLING
     Route: 065
  18. INVOKANA [Concomitant]
     Active Substance: CANAGLIFLOZIN
     Indication: TYPE 2 DIABETES MELLITUS
     Route: 065

REACTIONS (2)
  - Off label use [Unknown]
  - Product use issue [Unknown]
